FAERS Safety Report 4705734-7 (Version None)
Quarter: 2005Q3

REPORT INFORMATION
  Report Type: 
  Country: None (occurrence: None)
  Receive Date: 20050701
  Receipt Date: 20030407
  Transmission Date: 20060218
  Serious: Yes (Hospitalization, Other)
  Sender: FDA-Public Use
  Company Number: US-MERCK-0304USA00843

PATIENT
  Age: 63 Year
  Sex: Female
  Weight: 61 kg

DRUGS (6)
  1. VIOXX [Suspect]
     Indication: PAIN
     Route: 048
     Dates: start: 20000101, end: 20010101
  2. ASPIRIN [Concomitant]
     Indication: MYOCARDIAL INFARCTION
     Route: 065
     Dates: start: 19970501
  3. ZOCOR [Concomitant]
     Indication: BLOOD CHOLESTEROL INCREASED
     Route: 048
     Dates: start: 19980601
  4. ZOCOR [Concomitant]
     Route: 048
     Dates: start: 19980601
  5. TYLENOL [Concomitant]
     Route: 065
  6. VICODIN [Concomitant]
     Route: 065

REACTIONS (32)
  - ACUTE PSYCHOSIS [None]
  - BASAL CELL CARCINOMA [None]
  - CERUMEN IMPACTION [None]
  - CHEST PAIN [None]
  - CORONARY ARTERY DISEASE [None]
  - DEPRESSION [None]
  - FALL [None]
  - GASTRIC DISORDER [None]
  - HIATUS HERNIA [None]
  - HYPERTENSION [None]
  - INJURY [None]
  - IRRITABLE BOWEL SYNDROME [None]
  - JOINT SPRAIN [None]
  - MACULAR DEGENERATION [None]
  - MYALGIA [None]
  - NASAL SEPTUM DEVIATION [None]
  - NASAL ULCER [None]
  - NASOPHARYNGEAL REFLUX [None]
  - NIGHT SWEATS [None]
  - OSTEOARTHRITIS [None]
  - PAIN [None]
  - PELVIC PAIN [None]
  - PNEUMONITIS [None]
  - PYREXIA [None]
  - REFLUX OESOPHAGITIS [None]
  - RHINITIS [None]
  - SLEEP DISORDER [None]
  - TETANY [None]
  - TINNITUS [None]
  - URETHRAL STRICTURE [None]
  - URINARY TRACT INFECTION [None]
  - VERTIGO [None]
